FAERS Safety Report 20423123 (Version 11)
Quarter: 2022Q3

REPORT INFORMATION
  Report Type: Report from Study
  Country: US (occurrence: US)
  Receive Date: 20220203
  Receipt Date: 20220726
  Transmission Date: 20221027
  Serious: Yes (Other)
  Sender: FDA-Public Use
  Company Number: US-PFIZER INC-202200063437

PATIENT
  Age: 74 Year
  Sex: Female

DRUGS (4)
  1. LYRICA [Suspect]
     Active Substance: PREGABALIN
     Indication: Procedural pain
     Dosage: 150 MG, 3X/DAY
     Dates: start: 2003
  2. LYRICA [Suspect]
     Active Substance: PREGABALIN
     Indication: Neuralgia
  3. LYRICA [Suspect]
     Active Substance: PREGABALIN
     Indication: Pain in extremity
  4. LYRICA [Suspect]
     Active Substance: PREGABALIN
     Indication: Neuropathy peripheral

REACTIONS (7)
  - Suicidal ideation [Unknown]
  - Drug dependence [Unknown]
  - Drug ineffective [Unknown]
  - Formication [Unknown]
  - Back pain [Unknown]
  - Amnesia [Unknown]
  - Illness [Unknown]
